FAERS Safety Report 14634778 (Version 7)
Quarter: 2020Q3

REPORT INFORMATION
  Report Type: Spontaneous
  Country: US (occurrence: US)
  Receive Date: 20180314
  Receipt Date: 20200902
  Transmission Date: 20201102
  Serious: No
  Sender: FDA-Public Use
  Company Number: US-PFIZER INC-2018105389

PATIENT
  Age: 58 Year
  Sex: Female

DRUGS (1)
  1. LYRICA [Suspect]
     Active Substance: PREGABALIN
     Dosage: 75 MG, 2X/DAY (1 CAPSULE BY MOUTH TWICE DAILY)
     Route: 048

REACTIONS (6)
  - Nervousness [Unknown]
  - Crying [Unknown]
  - Hypersensitivity [Unknown]
  - Anxiety [Unknown]
  - Arthritis [Unknown]
  - Arthralgia [Unknown]
